FAERS Safety Report 5337745-5 (Version None)
Quarter: 2007Q2

REPORT INFORMATION
  Report Type: 
  Country: None (occurrence: None)
  Receive Date: 20070308
  Receipt Date: 20061208
  Transmission Date: 20071010
  Serious: No
  Sender: FDA-Public Use
  Company Number: 2006-BP-14332BP

PATIENT
  Sex: Female

DRUGS (12)
  1. SPIRIVA [Suspect]
     Indication: CHRONIC OBSTRUCTIVE PULMONARY DISEASE
     Dosage: 18 MCG (18 MCG), IH
     Route: 025
     Dates: start: 20061127
  2. ADVAIR DISKUS 100/50 [Concomitant]
  3. POTASSIUM (POTASSIUM) [Concomitant]
  4. AMBIEN [Concomitant]
  5. LOVASTATIN [Concomitant]
  6. MICARDIS [Concomitant]
  7. HYDROCHLOROTHIAZIDE [Concomitant]
  8. DETROL LA [Concomitant]
  9. MAALOX (ALUDROX /00082501/) [Concomitant]
  10. LORAZEPAM [Concomitant]
  11. CYMBALTA [Concomitant]
  12. FOSAMAX [Concomitant]

REACTIONS (5)
  - COUGH [None]
  - DRY MOUTH [None]
  - LACRIMATION INCREASED [None]
  - RHINORRHOEA [None]
  - VISION BLURRED [None]
